FAERS Safety Report 20112274 (Version 1)
Quarter: 2021Q4

REPORT INFORMATION
  Report Type: Spontaneous
  Country: FR (occurrence: FR)
  Receive Date: 20211125
  Receipt Date: 20211125
  Transmission Date: 20220303
  Serious: Yes (Congenital Anomaly, Other)
  Sender: FDA-Public Use
  Company Number: FR-ABBVIE-21K-056-4173157-00

PATIENT
  Sex: Male
  Weight: 3.04 kg

DRUGS (4)
  1. VALPROATE SODIUM [Suspect]
     Active Substance: VALPROATE SODIUM
     Indication: Maternal exposure timing unspecified
     Route: 064
  2. FOLIC ACID [Concomitant]
     Active Substance: FOLIC ACID
     Indication: Maternal exposure timing unspecified
     Route: 065
  3. FLUOR [Concomitant]
     Indication: Maternal exposure timing unspecified
     Route: 065
  4. CHOLECALCIFEROL [Concomitant]
     Active Substance: CHOLECALCIFEROL
     Indication: Maternal exposure timing unspecified
     Route: 065

REACTIONS (16)
  - Cellulitis [Unknown]
  - Congenital foot malformation [Unknown]
  - Behaviour disorder [Unknown]
  - Cardiac murmur [Unknown]
  - Dysmorphism [Unknown]
  - Foetal anticonvulsant syndrome [Unknown]
  - Scoliosis [Unknown]
  - Eye disorder [Unknown]
  - Asthma [Unknown]
  - Conjunctivitis allergic [Unknown]
  - Musculoskeletal disorder [Unknown]
  - Anxiety disorder [Unknown]
  - Ear infection [Unknown]
  - Sinusitis [Unknown]
  - Disturbance in attention [Unknown]
  - Foetal exposure during pregnancy [Unknown]
